FAERS Safety Report 23056695 (Version 4)
Quarter: 2024Q3

REPORT INFORMATION
  Report Type: Report from Study
  Country: US (occurrence: US)
  Receive Date: 20231012
  Receipt Date: 20240717
  Transmission Date: 20241016
  Serious: Yes (Hospitalization)
  Sender: ABBVIE
  Company Number: US-ABBVIE-5440864

PATIENT
  Age: 79 Year
  Sex: Female
  Weight: 97.068 kg

DRUGS (2)
  1. HUMIRA [Suspect]
     Active Substance: ADALIMUMAB
     Indication: Rheumatoid arthritis
     Dosage: FORM STRENGTH: 40 MG CITRATE FREE?DRUG END DATE- 2022
     Route: 058
     Dates: start: 20220314
  2. HUMIRA [Suspect]
     Active Substance: ADALIMUMAB
     Dosage: FORM STRENGTH: 40 MG CITRATE FREE
     Route: 058
     Dates: start: 20220823, end: 20240610

REACTIONS (8)
  - Skin laceration [Recovering/Resolving]
  - Pulmonary thrombosis [Recovering/Resolving]
  - Fall [Recovering/Resolving]
  - COVID-19 [Recovering/Resolving]
  - Abdominal pain upper [Not Recovered/Not Resolved]
  - Back injury [Recovering/Resolving]
  - Influenza [Recovering/Resolving]
  - Gastrointestinal disorder [Not Recovered/Not Resolved]

NARRATIVE: CASE EVENT DATE: 20240523
